FAERS Safety Report 9141704 (Version 1)
Quarter: 2013Q1

REPORT INFORMATION
  Report Type: Spontaneous
  Country: US (occurrence: US)
  Receive Date: 20130305
  Receipt Date: 20130305
  Transmission Date: 20140127
  Serious: No
  Sender: FDA-Public Use
  Company Number: US-TEVA-386816USA

PATIENT
  Age: 61 Year
  Sex: Female
  Weight: 74.91 kg

DRUGS (1)
  1. PROAIR HFA [Suspect]
     Indication: LUNG DISORDER
     Dosage: AS NEEDED
     Route: 055
     Dates: start: 20130214

REACTIONS (1)
  - Rhinitis [Recovered/Resolved]
